FAERS Safety Report 15156191 (Version 2)
Quarter: 2018Q3

REPORT INFORMATION
  Report Type: Spontaneous
  Country: CN (occurrence: CN)
  Receive Date: 20180717
  Receipt Date: 20180722
  Transmission Date: 20181010
  Serious: Yes (Life-Threatening, Other)
  Sender: FDA-Public Use
  Company Number: PHHY2018CN048677

PATIENT
  Age: 76 Year
  Sex: Female

DRUGS (1)
  1. ACLASTA [Suspect]
     Active Substance: ZOLEDRONIC ACID
     Indication: OSTEOPOROSIS
     Dosage: UNK
     Route: 065
     Dates: start: 20180511

REACTIONS (4)
  - Hyperpyrexia [Unknown]
  - Renal failure [Recovering/Resolving]
  - Ill-defined disorder [Unknown]
  - Pain [Unknown]

NARRATIVE: CASE EVENT DATE: 20180512
